FAERS Safety Report 9417865 (Version 2)
Quarter: 2013Q4

REPORT INFORMATION
  Report Type: Spontaneous
  Country: FR (occurrence: FR)
  Receive Date: 20130724
  Receipt Date: 20131120
  Transmission Date: 20140711
  Serious: Yes (Hospitalization)
  Sender: FDA-Public Use
  Company Number: FR-ASTRAZENECA-2013SE54695

PATIENT
  Age: 32077 Day
  Sex: Male

DRUGS (9)
  1. SYMBICORT TBH [Suspect]
     Indication: BRONCHITIS
     Route: 055
     Dates: start: 20130523, end: 20130531
  2. FUNGIZONE [Suspect]
     Indication: BRONCHITIS
     Route: 048
     Dates: start: 20130523, end: 20130531
  3. LEVOFLOXACIN [Suspect]
     Indication: BRONCHITIS
     Route: 048
     Dates: start: 20130523, end: 20130530
  4. ALDACTAZINE [Concomitant]
  5. KARDEGIC [Concomitant]
  6. TAHOR [Concomitant]
  7. OMIX LP [Concomitant]
  8. BISOCE [Concomitant]
  9. EPINITRIL [Concomitant]

REACTIONS (2)
  - Tendonitis [Recovered/Resolved]
  - Deep vein thrombosis [Recovered/Resolved]
